FAERS Safety Report 7032442-2 (Version None)
Quarter: 2010Q4

REPORT INFORMATION
  Report Type: 
  Country: None (occurrence: None)
  Receive Date: 20101007
  Receipt Date: 20100927
  Transmission Date: 20110411
  Serious: Yes (Other)
  Sender: FDA-Public Use
  Company Number: US-BAXTER-2010BH021304

PATIENT
  Sex: Female

DRUGS (1)
  1. DOBUTAMINE HYDROCHLORIDE [Suspect]
     Indication: CARDIAC STRESS TEST
     Route: 042
     Dates: start: 20100808, end: 20100808

REACTIONS (2)
  - DEVICE FAILURE [None]
  - DRUG INEFFECTIVE [None]
